FAERS Safety Report 9801867 (Version 2)
Quarter: 2014Q1

REPORT INFORMATION
  Report Type: Spontaneous
  Country: US (occurrence: US)
  Receive Date: 20140107
  Receipt Date: 20140107
  Transmission Date: 20141002
  Serious: Yes (Disabling, Other)
  Sender: FDA-Public Use
  Company Number: US-GE HEALTHCARE MEDICAL DIAGNOSTICS-OSCN-PR-1006S-0145

PATIENT
  Age: 36 Year
  Sex: Female

DRUGS (3)
  1. GADOLINIUM (UNSPECIFIED) [Suspect]
     Indication: MYOSITIS
     Dates: start: 20010801, end: 20010801
  2. GADOLINIUM (UNSPECIFIED) [Suspect]
     Indication: PRODUCT USED FOR UNKNOWN INDICATION
     Dates: start: 20051019, end: 20051019
  3. GADOLINIUM (UNSPECIFIED) [Suspect]
     Indication: PRODUCT USED FOR UNKNOWN INDICATION
     Dates: start: 20051026, end: 20051026

REACTIONS (4)
  - Nephrogenic systemic fibrosis [Not Recovered/Not Resolved]
  - Skin induration [Not Recovered/Not Resolved]
  - Joint contracture [Not Recovered/Not Resolved]
  - Oedema peripheral [Not Recovered/Not Resolved]
